FAERS Safety Report 14663310 (Version 3)
Quarter: 2018Q2

REPORT INFORMATION
  Report Type: Report from Study
  Country: FR (occurrence: FR)
  Receive Date: 20180321
  Receipt Date: 20180507
  Transmission Date: 20180711
  Serious: Yes (Hospitalization)
  Sender: FDA-Public Use
  Company Number: FR-ROCHE-2087387

PATIENT
  Age: 85 Year
  Sex: Female
  Weight: 60 kg

DRUGS (24)
  1. LOXEN (FRANCE) [Concomitant]
     Active Substance: NICARDIPINE HYDROCHLORIDE
     Indication: HYPERTENSION
     Route: 048
     Dates: start: 1989
  2. ACEBUTOLOL [Concomitant]
     Active Substance: ACEBUTOLOL
     Indication: TACHYARRHYTHMIA
     Route: 048
     Dates: start: 200912
  3. PARACETAMOL [Concomitant]
     Active Substance: ACETAMINOPHEN
     Dosage: TREATMENT DRUG
     Route: 042
     Dates: start: 20180305
  4. COUMADINE [Concomitant]
     Active Substance: WARFARIN SODIUM
     Route: 065
     Dates: start: 20180118
  5. BENDAMUSTINE [Suspect]
     Active Substance: BENDAMUSTINE
     Dosage: C1D2
     Route: 042
     Dates: start: 20140313, end: 20140313
  6. LASILIX [Concomitant]
     Active Substance: FUROSEMIDE
     Indication: HYPERTENSION
     Route: 048
     Dates: start: 201404
  7. DIFFU-K [Concomitant]
     Active Substance: POTASSIUM CHLORIDE
     Dosage: UNKNOWN MG
     Route: 048
     Dates: start: 20140320, end: 2014
  8. ACIDE FOLIQUE [Concomitant]
     Active Substance: FOLIC ACID
     Route: 065
     Dates: start: 20180305
  9. OBINUTUZUMAB. [Suspect]
     Active Substance: OBINUTUZUMAB
     Indication: CHRONIC LYMPHOCYTIC LEUKAEMIA
     Dosage: C1D1?DATE OF LAST DOSE PRIOR TO SAE/AESI : 04/AUG/2014?OBINUTUZUMAB WILL BE RECEIVED (25 MG) 1000 MG
     Route: 042
     Dates: start: 20140312, end: 20140312
  10. BENDAMUSTINE [Suspect]
     Active Substance: BENDAMUSTINE
     Dosage: C2D1: 09/APR/2014, C2D2: 10/APR/2014, C3D1: 06/MAY/2014, C3D2: 07/MAY/2014, C4D1: 03/JUN/2014, C4D2:
     Route: 042
     Dates: start: 20140409, end: 20140805
  11. PARACETAMOL [Concomitant]
     Active Substance: ACETAMINOPHEN
     Indication: PROPHYLAXIS
     Route: 048
     Dates: start: 20140312, end: 20140804
  12. DIFFU-K [Concomitant]
     Active Substance: POTASSIUM CHLORIDE
     Route: 065
     Dates: start: 20180305
  13. OBINUTUZUMAB. [Suspect]
     Active Substance: OBINUTUZUMAB
     Dosage: C1D8: 19/MAR/2014, C1D15: 26/MAR/2014, C2D1: 09/APR/2014, C3D1: 06/MAY/2014, C4D1: 03/JUN/2014, C5D1
     Route: 042
     Dates: start: 20140319, end: 20140804
  14. HEMIGOXINE [Concomitant]
     Active Substance: DIGOXIN
     Indication: TACHYARRHYTHMIA
     Route: 048
     Dates: start: 2009
  15. TAREG [Concomitant]
     Active Substance: VALSARTAN
     Route: 048
     Dates: start: 20180118
  16. INEXIUM [Concomitant]
     Active Substance: ESOMEPRAZOLE
     Route: 048
     Dates: start: 20140403, end: 20140409
  17. XANAX [Concomitant]
     Active Substance: ALPRAZOLAM
     Indication: PROPHYLAXIS
     Route: 048
     Dates: start: 20140314
  18. FUMAFER [Concomitant]
     Active Substance: FERROUS FUMARATE
     Route: 065
     Dates: start: 20180118, end: 20180308
  19. OBINUTUZUMAB. [Suspect]
     Active Substance: OBINUTUZUMAB
     Dosage: C1D2
     Route: 042
     Dates: start: 20140313, end: 20140313
  20. BENDAMUSTINE [Suspect]
     Active Substance: BENDAMUSTINE
     Indication: CHRONIC LYMPHOCYTIC LEUKAEMIA
     Dosage: C1D1 ?DATE OF LAST DOSE PRIOR TO SAE/AESI : 05/AUG/2014?BENDAMUSTINE WILL BE RECEIVED EVERYDAY (QD)
     Route: 042
     Dates: start: 20140312, end: 20140312
  21. PREVISCAN (FRANCE) [Concomitant]
     Active Substance: FLUINDIONE
     Indication: TACHYARRHYTHMIA
     Route: 048
     Dates: start: 200912
  22. SMECTA [Concomitant]
     Active Substance: MONTMORILLONITE
     Route: 048
     Dates: start: 20141003
  23. INEXIUM [Concomitant]
     Active Substance: ESOMEPRAZOLE
     Dosage: TREATMENT DRUG
     Route: 042
     Dates: start: 20180305
  24. MOPRAL [Concomitant]
     Active Substance: OMEPRAZOLE
     Indication: PROPHYLAXIS
     Route: 048
     Dates: start: 20140804

REACTIONS (1)
  - Abdominal pain upper [Recovered/Resolved]

NARRATIVE: CASE EVENT DATE: 20180305
